FAERS Safety Report 9139154 (Version 1)
Quarter: 2013Q1

REPORT INFORMATION
  Report Type: Spontaneous
  Country: US (occurrence: None)
  Receive Date: 20130206
  Receipt Date: 20130206
  Transmission Date: 20140127
  Serious: Yes (Death)
  Sender: FDA-Public Use
  Company Number: IMP_06349_2013

PATIENT
  Age: 27 Year
  Sex: Male

DRUGS (6)
  1. ALPRAZOLAM [Suspect]
     Indication: PRODUCT USED FOR UNKNOWN INDICATION
     Dosage: (DF)
  2. MORPHINE [Suspect]
     Indication: PRODUCT USED FOR UNKNOWN INDICATION
     Dosage: (DF)
  3. HYDROMORPHONE [Suspect]
     Indication: PRODUCT USED FOR UNKNOWN INDICATION
     Dosage: (DF)
  4. OXAZEPAM [Suspect]
     Indication: PRODUCT USED FOR UNKNOWN INDICATION
     Dosage: (DF)
  5. TEMAZEPAM [Suspect]
     Indication: PRODUCT USED FOR UNKNOWN INDICATION
     Dosage: (DF)
  6. CANNABIS SATIVA SUBSP. INDICA TOP [Suspect]

REACTIONS (3)
  - Poisoning [None]
  - Cardiac arrest [None]
  - Respiratory arrest [None]
